FAERS Safety Report 16446822 (Version 1)
Quarter: 2019Q2

REPORT INFORMATION
  Report Type: Spontaneous
  Country: CA (occurrence: CA)
  Receive Date: 20190618
  Receipt Date: 20190618
  Transmission Date: 20190711
  Serious: Yes (Other)
  Sender: FDA-Public Use
  Company Number: CA-FERRINGPH-2019FE03556

PATIENT

DRUGS (9)
  1. NOCDURNA [Suspect]
     Active Substance: DESMOPRESSIN ACETATE
     Dosage: 0.025 MG, 2 TIMES DAILY
     Route: 048
  2. CORTEF [Suspect]
     Active Substance: HYDROCORTISONE
     Indication: PRODUCT USED FOR UNKNOWN INDICATION
     Dosage: 3.5 MG, 2 TIMES DAILY
     Route: 048
  3. OMEPRAZOLE. [Concomitant]
     Active Substance: OMEPRAZOLE
     Indication: PRODUCT USED FOR UNKNOWN INDICATION
     Dosage: 10 MG, 2 TIMES DAILY
     Route: 048
  4. NOCDURNA [Suspect]
     Active Substance: DESMOPRESSIN ACETATE
     Indication: PRODUCT USED FOR UNKNOWN INDICATION
     Dosage: 0.05 MG, 1 TIME DAILY
     Route: 048
  5. METRONIDAZOLE. [Concomitant]
     Active Substance: METRONIDAZOLE
     Indication: PRODUCT USED FOR UNKNOWN INDICATION
     Dosage: 180 MG, 2 TIMES DAILY
     Route: 048
  6. CLOBAZAM. [Suspect]
     Active Substance: CLOBAZAM
     Indication: PRODUCT USED FOR UNKNOWN INDICATION
     Route: 048
  7. MORPHINE [Concomitant]
     Active Substance: MORPHINE
     Indication: PRODUCT USED FOR UNKNOWN INDICATION
     Dosage: 1 MG, 1 EVERY 3 HOURS
     Route: 048
  8. CLONIDINE. [Suspect]
     Active Substance: CLONIDINE
     Indication: PRODUCT USED FOR UNKNOWN INDICATION
     Dosage: 0.05 MG, 1 TIME DAILY
     Route: 048
  9. SYNTHROID [Suspect]
     Active Substance: LEVOTHYROXINE SODIUM
     Indication: PRODUCT USED FOR UNKNOWN INDICATION
     Route: 048

REACTIONS (4)
  - Reaction to excipient [Unknown]
  - Product use issue [Unknown]
  - Gastrointestinal disorder [Recovering/Resolving]
  - Overdose [Unknown]
